FAERS Safety Report 13922519 (Version 1)
Quarter: 2017Q3

REPORT INFORMATION
  Report Type: Report from Study
  Country: US (occurrence: US)
  Receive Date: 20170830
  Receipt Date: 20170830
  Transmission Date: 20171127
  Serious: Yes (Hospitalization)
  Sender: FDA-Public Use
  Company Number: US-TOLMAR, INC.-2017US007240

PATIENT
  Age: 75 Year
  Sex: Male

DRUGS (7)
  1. FENTANYL. [Concomitant]
     Active Substance: FENTANYL
  2. LISINOPRIL. [Concomitant]
     Active Substance: LISINOPRIL
  3. AMLODIPINE [Concomitant]
     Active Substance: AMLODIPINE BESYLATE
  4. ELIGARD [Suspect]
     Active Substance: LEUPROLIDE ACETATE
     Indication: PROSTATE CANCER
     Dosage: 45 MG, 6 MONTH DOSE
     Route: 058
  5. DOCUSATE [Concomitant]
     Active Substance: DOCUSATE
  6. BICALUTAMIDE. [Concomitant]
     Active Substance: BICALUTAMIDE
  7. VICODIN [Concomitant]
     Active Substance: ACETAMINOPHEN\HYDROCODONE BITARTRATE

REACTIONS (1)
  - Anaemia [Unknown]
